FAERS Safety Report 9743921 (Version 1)
Quarter: 2013Q4

REPORT INFORMATION
  Report Type: Spontaneous
  Country: US (occurrence: US)
  Receive Date: 20131210
  Receipt Date: 20131210
  Transmission Date: 20140711
  Serious: No
  Sender: FDA-Public Use
  Company Number: US-BIOGENIDEC-2013BI097951

PATIENT
  Age: 45 Year
  Sex: Female

DRUGS (11)
  1. TECFIDERA [Suspect]
     Indication: MULTIPLE SCLEROSIS
     Route: 048
     Dates: start: 20130911
  2. TECFIDERA [Suspect]
     Indication: MULTIPLE SCLEROSIS
     Route: 048
     Dates: end: 20131001
  3. LORAZEPAM [Concomitant]
  4. LEVETIRACETAM ER [Concomitant]
  5. ORACEA [Concomitant]
  6. JUNEL FE [Concomitant]
  7. PROZAC [Concomitant]
  8. DAILY MULTI VITAMIN-IRON [Concomitant]
  9. VITAMIN B12 [Concomitant]
  10. VITAMIN D3 [Concomitant]
  11. CRANBERRY [Concomitant]

REACTIONS (4)
  - Nausea [Unknown]
  - Vomiting [Unknown]
  - Diarrhoea [Unknown]
  - Flushing [Unknown]
